FAERS Safety Report 10024563 (Version 8)
Quarter: 2014Q2

REPORT INFORMATION
  Report Type: Report from Study
  Country: US (occurrence: US)
  Receive Date: 20140320
  Receipt Date: 20140620
  Transmission Date: 20141212
  Serious: Yes (Hospitalization)
  Sender: FDA-Public Use
  Company Number: US-JNJFOC-20140308340

PATIENT
  Age: 20 Year
  Sex: Male
  Weight: 55.1 kg

DRUGS (7)
  1. REMICADE [Suspect]
     Indication: INFLAMMATORY BOWEL DISEASE
     Route: 042
     Dates: start: 20081210
  2. METHOTREXATE [Concomitant]
     Route: 065
  3. LEXAPRO [Concomitant]
     Route: 065
  4. PERIACTIN [Concomitant]
     Route: 065
  5. PROBIOTICS [Concomitant]
     Route: 065
  6. IRON [Concomitant]
     Route: 065
  7. HUMIRA [Concomitant]
     Route: 065
     Dates: start: 20100429

REACTIONS (2)
  - Crohn^s disease [Recovered/Resolved]
  - Diet noncompliance [Recovered/Resolved]
